FAERS Safety Report 19479688 (Version 1)
Quarter: 2021Q3

REPORT INFORMATION
  Report Type: Spontaneous
  Country: US (occurrence: US)
  Receive Date: 20210701
  Receipt Date: 20210701
  Transmission Date: 20211014
  Serious: No
  Sender: FDA-Public Use
  Company Number: US-DRREDDYS-SPO/USA/21/0137196

PATIENT
  Age: 28 Year
  Sex: Male

DRUGS (3)
  1. PREDNISONE. [Interacting]
     Active Substance: PREDNISONE
     Indication: CROHN^S DISEASE
  2. PREDNISONE. [Interacting]
     Active Substance: PREDNISONE
  3. BUPRENORPHINE AND NALOXONE SUBLINGUAL FILM 2 MG/0.5 MG AND 8MG/2MG [Suspect]
     Active Substance: BUPRENORPHINE\NALOXONE
     Indication: DRUG USE DISORDER
     Dosage: 8MG AND 2MG
     Route: 060

REACTIONS (5)
  - Drug screen negative [Unknown]
  - Hypermetabolism [Unknown]
  - Enzyme induction [Unknown]
  - False negative investigation result [Unknown]
  - Drug interaction [Unknown]
